FAERS Safety Report 6356716-3 (Version None)
Quarter: 2009Q3

REPORT INFORMATION
  Report Type: 
  Country: None (occurrence: None)
  Receive Date: 20090915
  Receipt Date: 20090901
  Transmission Date: 20100115
  Serious: Yes (Hospitalization, Disabling, Other)
  Sender: FDA-Public Use
  Company Number: US-MERCK-0909USA00132

PATIENT
  Age: 66 Year
  Sex: Female
  Weight: 83 kg

DRUGS (13)
  1. FOSAMAX [Suspect]
     Indication: OSTEOPENIA
     Route: 048
     Dates: start: 19980101, end: 20071001
  2. SYNTHROID [Concomitant]
     Route: 065
  3. OMEPRAZOLE [Concomitant]
     Route: 065
  4. HYZAAR [Concomitant]
     Route: 065
  5. SINGULAIR [Concomitant]
     Route: 065
  6. ASPIRIN [Concomitant]
     Route: 065
  7. CITRACAL + D [Concomitant]
     Route: 065
  8. CHONDROITIN SULFATE SODIUM AND DIMETHYL SULFONE AND GLUCOSAMINE [Concomitant]
     Route: 065
  9. SENNA-C PLUS [Concomitant]
     Route: 065
  10. ADVAIR HFA [Concomitant]
     Route: 065
  11. FLUTICASONE PROPIONATE [Concomitant]
     Route: 065
  12. VENTOLIN [Concomitant]
     Route: 065
  13. CHOLECALCIFEROL [Concomitant]
     Route: 065

REACTIONS (5)
  - FEMUR FRACTURE [None]
  - GAIT DISTURBANCE [None]
  - HYPOTHYROIDISM [None]
  - PAIN IN EXTREMITY [None]
  - TIBIA FRACTURE [None]
